FAERS Safety Report 11726846 (Version 1)
Quarter: 2015Q4

REPORT INFORMATION
  Report Type: Spontaneous
  Country: US (occurrence: US)
  Receive Date: 20151112
  Receipt Date: 20151112
  Transmission Date: 20160304
  Serious: Yes (Other)
  Sender: FDA-Public Use
  Company Number: US-BEH-2015055577

PATIENT
  Age: 56 Year
  Sex: Female
  Weight: 132 kg

DRUGS (32)
  1. LIDOCAINE. [Concomitant]
     Active Substance: LIDOCAINE
  2. SODIUM CHLORIDE. [Concomitant]
     Active Substance: SODIUM CHLORIDE
  3. LYRICA [Concomitant]
     Active Substance: PREGABALIN
  4. VITAMIN B12 [Concomitant]
     Active Substance: CYANOCOBALAMIN
  5. CALCI-CHEW [Concomitant]
  6. XANAX [Concomitant]
     Active Substance: ALPRAZOLAM
  7. NOXAFIL [Concomitant]
     Active Substance: POSACONAZOLE
  8. CYMBALTA [Concomitant]
     Active Substance: DULOXETINE HYDROCHLORIDE
  9. PROGRAF [Concomitant]
     Active Substance: TACROLIMUS\TACROLIMUS ANHYDROUS
  10. BACTRIM [Concomitant]
     Active Substance: SULFAMETHOXAZOLE\TRIMETHOPRIM
  11. SENOKOT [Concomitant]
     Active Substance: SENNOSIDES
  12. NORCO [Concomitant]
     Active Substance: ACETAMINOPHEN\HYDROCODONE BITARTRATE
  13. VITAMIN B6 [Concomitant]
     Active Substance: PYRIDOXINE HYDROCHLORIDE
  14. NOVOLOG [Concomitant]
     Active Substance: INSULIN ASPART
  15. METOPROLOL TARTRATE. [Concomitant]
     Active Substance: METOPROLOL TARTRATE
  16. ZEMAIRA [Suspect]
     Active Substance: .ALPHA.1-PROTEINASE INHIBITOR HUMAN
     Indication: ALPHA-1 ANTI-TRYPSIN DEFICIENCY
     Route: 042
  17. DIPHENHYDRAMINE. [Concomitant]
     Active Substance: DIPHENHYDRAMINE
  18. FOLIC ACID. [Concomitant]
     Active Substance: FOLIC ACID
  19. EPIPEN [Concomitant]
     Active Substance: EPINEPHRINE
  20. PREDNISONE. [Concomitant]
     Active Substance: PREDNISONE
  21. TRAMADOL. [Concomitant]
     Active Substance: TRAMADOL
  22. MULTIVITAMIN [Concomitant]
     Active Substance: VITAMINS
  23. ANTI-DIABETICS [Concomitant]
     Active Substance: UNSPECIFIED INGREDIENT
  24. HEPARIN [Concomitant]
     Active Substance: HEPARIN SODIUM
  25. LEVEMIR [Concomitant]
     Active Substance: INSULIN DETEMIR
  26. TIZANIDINE. [Concomitant]
     Active Substance: TIZANIDINE
  27. MELATONIN [Concomitant]
     Active Substance: MELATONIN
  28. VITAMIN D3 [Concomitant]
     Active Substance: CHOLECALCIFEROL
  29. FUROSEMIDE. [Concomitant]
     Active Substance: FUROSEMIDE
  30. AMBIEN [Concomitant]
     Active Substance: ZOLPIDEM TARTRATE
  31. MYCOPHENOLATE [Concomitant]
     Active Substance: MYCOPHENOLIC ACID
  32. LEVOCETIRIZINE [Concomitant]
     Active Substance: LEVOCETIRIZINE

REACTIONS (1)
  - Pulmonary function test decreased [Unknown]

NARRATIVE: CASE EVENT DATE: 20151104
